FAERS Safety Report 9234894 (Version 1)
Quarter: 2013Q2

REPORT INFORMATION
  Report Type: Spontaneous
  Country: US (occurrence: US)
  Receive Date: 20130416
  Receipt Date: 20130416
  Transmission Date: 20140414
  Serious: No
  Sender: FDA-Public Use
  Company Number: US-BANPHARM-20120178

PATIENT
  Age: 55 Year
  Sex: Female
  Weight: 90.7 kg

DRUGS (11)
  1. ALEVE LIQUID GELS 220 MG [Suspect]
     Indication: HEADACHE
     Dosage: 1 DF, BID,
     Route: 048
     Dates: start: 20120912
  2. LITHIUM [Concomitant]
  3. SYNTHROID [Concomitant]
  4. ADVAIR [Concomitant]
  5. ALBUTEROL [Concomitant]
  6. LOVAZA [Concomitant]
  7. OMEPRAZOLE [Concomitant]
  8. HYDROXADRINE [Concomitant]
  9. OXYBUTYNIN [Concomitant]
  10. PRAMIPEXOLE [Concomitant]
  11. OLANZAPINE [Concomitant]

REACTIONS (1)
  - Drug effect incomplete [Unknown]
